FAERS Safety Report 8956835 (Version 1)
Quarter: 2012Q4

REPORT INFORMATION
  Report Type: Spontaneous
  Country: NL (occurrence: None)
  Receive Date: 20121128
  Receipt Date: 20121128
  Transmission Date: 20130627
  Serious: Yes (Death, Hospitalization)
  Sender: FDA-Public Use
  Company Number: NL-010154

PATIENT
  Age: 38 Year
  Sex: Female

DRUGS (3)
  1. TRIPTORELIN [Suspect]
     Dosage: dose: long protocol)
  2. UROFOLLITROPIN [Suspect]
  3. CHORAGON (HUMAN CHORIONIC GONADOTROPHIN) (NOT SPECIFIED) [Suspect]

REACTIONS (2)
  - Ovarian hyperstimulation syndrome [None]
  - Carotid artery thrombosis [None]
